FAERS Safety Report 9912528 (Version 1)
Quarter: 2014Q1

REPORT INFORMATION
  Report Type: Spontaneous
  Country: US (occurrence: None)
  Receive Date: 20140218
  Receipt Date: 20140218
  Transmission Date: 20141002
  Serious: Yes (Life-Threatening, Hospitalization)
  Sender: FDA-Public Use
  Company Number: None

PATIENT
  Age: 75 Year
  Sex: Male
  Weight: 103.2 kg

DRUGS (2)
  1. WARFARIN [Suspect]
     Dates: end: 20130709
  2. ASPIRIN/DIPYRIDAMOLE [Suspect]
     Dates: end: 20130713

REACTIONS (2)
  - Gastritis [None]
  - Gastritis erosive [None]
